FAERS Safety Report 8218076-2 (Version None)
Quarter: 2012Q1

REPORT INFORMATION
  Report Type: 
  Country: None (occurrence: None)
  Receive Date: 20120319
  Receipt Date: 20120313
  Transmission Date: 20120608
  Serious: Yes (Hospitalization, Other)
  Sender: FDA-Public Use
  Company Number: US-PFIZER INC-2012066583

PATIENT
  Sex: Female
  Weight: 95 kg

DRUGS (3)
  1. XALATAN [Suspect]
     Indication: GLAUCOMA
     Dosage: UNK, 1X/DAY
     Route: 047
  2. COSOPT [Concomitant]
     Dosage: UNK
     Route: 047
  3. SYNTHROID [Concomitant]
     Dosage: UNK

REACTIONS (8)
  - PANCREATITIS [None]
  - ANAEMIA [None]
  - VOMITING [None]
  - WEIGHT DECREASED [None]
  - CYSTITIS [None]
  - PANCREATIC DISORDER [None]
  - PYREXIA [None]
  - ASTHENIA [None]
